FAERS Safety Report 6383943-1 (Version None)
Quarter: 2009Q4

REPORT INFORMATION
  Report Type: 
  Country: None (occurrence: None)
  Receive Date: 20091001
  Receipt Date: 20090921
  Transmission Date: 20100525
  Serious: Yes (Hospitalization)
  Sender: FDA-Public Use
  Company Number: TH-ELI_LILLY_AND_COMPANY-TH200907006320

PATIENT
  Age: 92 Year
  Sex: Male

DRUGS (1)
  1. FORTEO [Suspect]
     Indication: HIP FRACTURE
     Dosage: 20 UG, DAILY (1/D)
     Route: 058
     Dates: start: 20081031, end: 20081128

REACTIONS (2)
  - CONVULSION [None]
  - OFF LABEL USE [None]
